FAERS Safety Report 18324369 (Version 1)
Quarter: 2020Q3

REPORT INFORMATION
  Report Type: Spontaneous
  Country: US (occurrence: US)
  Receive Date: 20200928
  Receipt Date: 20200928
  Transmission Date: 20201103
  Serious: Yes (Other)
  Sender: FDA-Public Use
  Company Number: US-ANIPHARMA-2020-US-019272

PATIENT
  Age: 72 Year
  Sex: Female

DRUGS (3)
  1. ANASTROZOLE. [Suspect]
     Active Substance: ANASTROZOLE
     Indication: PRODUCT USED FOR UNKNOWN INDICATION
     Route: 065
  2. AFINITOR [Suspect]
     Active Substance: EVEROLIMUS
     Route: 065
  3. AROMASIN [Suspect]
     Active Substance: EXEMESTANE
     Dosage: 25MG
     Route: 065

REACTIONS (3)
  - Disease progression [Unknown]
  - Tumour marker increased [Unknown]
  - Metastases to bone [Unknown]
